FAERS Safety Report 7551135-6 (Version None)
Quarter: 2011Q2

REPORT INFORMATION
  Report Type: 
  Country: None (occurrence: None)
  Receive Date: 20110616
  Receipt Date: 20110613
  Transmission Date: 20111010
  Serious: Yes (Other)
  Sender: FDA-Public Use
  Company Number: US-PFIZER INC-2011114774

PATIENT
  Sex: Female

DRUGS (2)
  1. GEODON [Interacting]
     Indication: HALLUCINATION, AUDITORY
     Dosage: UNK
  2. LYRICA [Suspect]
     Indication: PAIN IN EXTREMITY
     Dosage: 100 MG, 2X/DAY
     Route: 048

REACTIONS (3)
  - DRUG INTERACTION [None]
  - ASTHENIA [None]
  - DIZZINESS [None]
